FAERS Safety Report 8017184-9 (Version None)
Quarter: 2012Q1

REPORT INFORMATION
  Report Type: 
  Country: None (occurrence: None)
  Receive Date: 20120102
  Receipt Date: 20111223
  Transmission Date: 20120608
  Serious: Yes (Hospitalization)
  Sender: FDA-Public Use
  Company Number: PHHO2011RU021632

PATIENT
  Sex: Male
  Weight: 91.8 kg

DRUGS (5)
  1. NO TREATMENT RECEIVED [Suspect]
     Indication: RENAL TRANSPLANT
     Dosage: UNK
  2. NEORAL [Suspect]
     Indication: RENAL TRANSPLANT
     Dosage: 175 MG+ 150 MG, QD
     Dates: start: 20111013, end: 20111223
  3. MYFORTIC [Suspect]
     Indication: RENAL TRANSPLANT
     Dosage: 1440 MG, QD
     Dates: start: 20111013, end: 20111223
  4. PREDNISOLONE [Suspect]
     Indication: RENAL TRANSPLANT
     Dosage: 1875 MG, QD
     Dates: start: 20111013, end: 20111223
  5. BISOPROLOL FUMARATE [Concomitant]
     Indication: HYPERTENSION
     Dosage: 5 MG, QD
     Dates: start: 20111013, end: 20111223

REACTIONS (1)
  - KIDNEY TRANSPLANT REJECTION [None]
